FAERS Safety Report 22654391 (Version 1)
Quarter: 2023Q2

REPORT INFORMATION
  Report Type: Spontaneous
  Country: US (occurrence: US)
  Receive Date: 20230629
  Receipt Date: 20230629
  Transmission Date: 20230722
  Serious: No
  Sender: FDA-Public Use
  Company Number: US-BEH-2023160325

PATIENT
  Sex: Female

DRUGS (62)
  1. HIZENTRA [Suspect]
     Active Substance: HUMAN IMMUNOGLOBULIN G
     Indication: Immunodeficiency common variable
     Dosage: 14 GRAM, QW
     Route: 058
     Dates: start: 20200221
  2. HIZENTRA [Suspect]
     Active Substance: HUMAN IMMUNOGLOBULIN G
     Dosage: 10 GRAM
     Route: 065
  3. HIZENTRA [Suspect]
     Active Substance: HUMAN IMMUNOGLOBULIN G
     Dosage: UNK
     Route: 065
     Dates: start: 20230614
  4. ACYCLOVIR [Concomitant]
     Active Substance: ACYCLOVIR
  5. ALBUTEROL SULFATE [Concomitant]
     Active Substance: ALBUTEROL SULFATE
  6. ALBUTEROL [Concomitant]
     Active Substance: ALBUTEROL
  7. ALBUTEROL [Concomitant]
     Active Substance: ALBUTEROL
  8. ALENDRONATE [Concomitant]
     Active Substance: ALENDRONATE SODIUM
  9. ALENDRONATE [Concomitant]
     Active Substance: ALENDRONATE SODIUM
  10. ATORVASTATIN [Concomitant]
     Active Substance: ATORVASTATIN
  11. ATORVASTATIN [Concomitant]
     Active Substance: ATORVASTATIN
  12. BUDESONIDE\FORMOTEROL [Concomitant]
     Active Substance: BUDESONIDE\FORMOTEROL
  13. CIMETIDINE [Concomitant]
     Active Substance: CIMETIDINE
  14. CYCLOBENZAPRINE [Concomitant]
     Active Substance: CYCLOBENZAPRINE
  15. DICLOFENAC [Concomitant]
     Active Substance: DICLOFENAC
  16. DOCUSATE SOD [Concomitant]
  17. DOXAZOSIN [Concomitant]
     Active Substance: DOXAZOSIN MESYLATE
  18. DULOXETINE [Concomitant]
     Active Substance: DULOXETINE
  19. DULOXETINE [Concomitant]
     Active Substance: DULOXETINE
  20. EPINEPHRINE [Concomitant]
     Active Substance: EPINEPHRINE
  21. FLUTICASONE [Concomitant]
     Active Substance: FLUTICASONE
  22. GABAPENTIN [Concomitant]
     Active Substance: GABAPENTIN
  23. GABAPENTIN [Concomitant]
     Active Substance: GABAPENTIN
  24. ACETAMINOPHEN\HYDROCODONE [Concomitant]
     Active Substance: ACETAMINOPHEN\HYDROCODONE
  25. HYDROCORT [HYDROCORTISONE] [Concomitant]
  26. HYDROXYZINE HYDROCHLORIDE [Concomitant]
     Active Substance: HYDROXYZINE HYDROCHLORIDE
  27. IBUPROFEN [Concomitant]
     Active Substance: IBUPROFEN
  28. IBUPROFEN [Concomitant]
     Active Substance: IBUPROFEN
  29. KEPPRA [Concomitant]
     Active Substance: LEVETIRACETAM
  30. KLOR-CON M10 [Concomitant]
     Active Substance: POTASSIUM CHLORIDE
  31. LASIX [Concomitant]
     Active Substance: FUROSEMIDE
  32. LATUDA [Concomitant]
     Active Substance: LURASIDONE HYDROCHLORIDE
  33. LATUDA [Concomitant]
     Active Substance: LURASIDONE HYDROCHLORIDE
  34. LATUDA [Concomitant]
     Active Substance: LURASIDONE HYDROCHLORIDE
  35. LEVETIRACETAM [Concomitant]
     Active Substance: LEVETIRACETAM
  36. LORATADINE [Concomitant]
     Active Substance: LORATADINE
  37. MEDROXYPROGESTERONE ACETATE [Concomitant]
     Active Substance: MEDROXYPROGESTERONE ACETATE
  38. METHOCARBAMOL [Concomitant]
     Active Substance: METHOCARBAMOL
  39. MUCINEX [Concomitant]
     Active Substance: GUAIFENESIN
  40. VITAMINS NOS [Concomitant]
     Active Substance: VITAMINS
  41. NAPROXEN [Concomitant]
     Active Substance: NAPROXEN
  42. OMEPRAZOLE [Concomitant]
     Active Substance: OMEPRAZOLE
  43. OYSTER SHELL [Concomitant]
     Active Substance: OSTREA EDULIS SHELL
  44. POLYETHYLENE GLYCOLS [Concomitant]
     Active Substance: POLYETHYLENE GLYCOLS
  45. POTASSIUM CHLORIDE [Concomitant]
     Active Substance: POTASSIUM CHLORIDE
  46. PRAZOSIN HYDROCHLORIDE [Concomitant]
     Active Substance: PRAZOSIN HYDROCHLORIDE
  47. PRAZOSIN HYDROCHLORIDE [Concomitant]
     Active Substance: PRAZOSIN HYDROCHLORIDE
  48. PREDNISONE [Concomitant]
     Active Substance: PREDNISONE
  49. PREDNISONE [Concomitant]
     Active Substance: PREDNISONE
  50. PROMETHAZINE [Concomitant]
     Active Substance: PROMETHAZINE HYDROCHLORIDE
  51. PROMETHAZINE [Concomitant]
     Active Substance: PROMETHAZINE HYDROCHLORIDE
  52. QVAR REDIHALER [Concomitant]
     Active Substance: BECLOMETHASONE DIPROPIONATE
  53. RANITIDINE [Concomitant]
     Active Substance: RANITIDINE
  54. SOLU-CORTEF [Concomitant]
     Active Substance: HYDROCORTISONE SODIUM SUCCINATE
  55. SUMATRIPTAN [Concomitant]
     Active Substance: SUMATRIPTAN
  56. SUPREP BOWEL PREP [Concomitant]
     Active Substance: MAGNESIUM SULFATE\POTASSIUM SULFATE\SODIUM SULFATE
  57. TRAZODONE [Concomitant]
     Active Substance: TRAZODONE HYDROCHLORIDE
  58. TRAZODONE [Concomitant]
     Active Substance: TRAZODONE HYDROCHLORIDE
  59. VALACYCLOVIR [Concomitant]
     Active Substance: VALACYCLOVIR HYDROCHLORIDE
  60. VITAMIN D NOS [Concomitant]
     Active Substance: VITAMIN D NOS
  61. VITAMIN D NOS [Concomitant]
     Active Substance: VITAMIN D NOS
  62. ZOFRAN [Concomitant]
     Active Substance: ONDANSETRON HYDROCHLORIDE

REACTIONS (7)
  - Malaise [Not Recovered/Not Resolved]
  - Therapy interrupted [Not Recovered/Not Resolved]
  - Withdrawal syndrome [Not Recovered/Not Resolved]
  - No adverse event [Not Recovered/Not Resolved]
  - Product dose omission issue [Not Recovered/Not Resolved]
  - Incorrect dose administered [Not Recovered/Not Resolved]
  - Product dispensing issue [Not Recovered/Not Resolved]
